FAERS Safety Report 9947603 (Version 1)
Quarter: 2014Q1

REPORT INFORMATION
  Report Type: Report from Study
  Country: US (occurrence: US)
  Receive Date: 20140303
  Receipt Date: 20140303
  Transmission Date: 20141002
  Serious: No
  Sender: FDA-Public Use
  Company Number: US-ABBVIE-13P-163-1062667-00

PATIENT
  Age: 58 Year
  Sex: Female

DRUGS (5)
  1. HUMIRA [Suspect]
     Indication: PSORIATIC ARTHROPATHY
     Route: 058
     Dates: start: 20130307
  2. DIOVAN HCT [Concomitant]
     Indication: HYPERTENSION
     Dosage: 320/12.5MG DAILY
  3. CYMBALTA [Concomitant]
     Indication: ARTHRITIS
  4. ASTHMANEX [Concomitant]
     Indication: ASTHMA
     Dosage: INHALER, DAILY
  5. PROAIR [Concomitant]
     Indication: ASTHMA
     Dosage: INHALER

REACTIONS (2)
  - Incorrect dose administered [Unknown]
  - Injection site pain [Unknown]
